FAERS Safety Report 7459367-2 (Version None)
Quarter: 2011Q2

REPORT INFORMATION
  Report Type: 
  Country: None (occurrence: None)
  Receive Date: 20110504
  Receipt Date: 20110504
  Transmission Date: 20111010
  Serious: Yes (Life-Threatening, Hospitalization)
  Sender: FDA-Public Use
  Company Number: None

PATIENT
  Sex: Female
  Weight: 87.5442 kg

DRUGS (2)
  1. DEXAMETHASONE [Suspect]
     Indication: INTERVERTEBRAL DISC PROTRUSION
     Dosage: TAKE 4 TABLETS BY MOUTH FOUR TIMES A DAY FOR 2 DAYS, THEN TAKE 4 TABLETS TWICE A DAY FOR 2 DAYS, THE
  2. OXYCODONE AND ACETAMINOPHEN [Suspect]
     Indication: PAIN
     Dosage: TAKE 1 TO 2 TABLETS BY MOUTH EVERY 4 TO 6 HOURS AS NEEDED (MAX DOSE 12 TABS A DAY)

REACTIONS (13)
  - AGITATION [None]
  - VISUAL IMPAIRMENT [None]
  - SWELLING [None]
  - CHEST DISCOMFORT [None]
  - DECREASED APPETITE [None]
  - VOMITING [None]
  - HYPOAESTHESIA [None]
  - URTICARIA [None]
  - WEIGHT INCREASED [None]
  - DISTURBANCE IN ATTENTION [None]
  - PALPITATIONS [None]
  - MENSTRUAL DISORDER [None]
  - GASTRIC DILATATION [None]
